FAERS Safety Report 21730417 (Version 2)
Quarter: 2023Q1

REPORT INFORMATION
  Report Type: Spontaneous
  Country: US (occurrence: US)
  Receive Date: 20221215
  Receipt Date: 20230313
  Transmission Date: 20230417
  Serious: No
  Sender: FDA-Public Use
  Company Number: US-ABBVIE-4203193

PATIENT
  Age: 62 Year
  Sex: Female

DRUGS (1)
  1. SYNTHROID [Suspect]
     Active Substance: LEVOTHYROXINE SODIUM
     Indication: Product used for unknown indication
     Route: 048

REACTIONS (5)
  - Autoimmune disorder [Unknown]
  - Allergy to chemicals [Unknown]
  - Hypothyroidism [Unknown]
  - Allergy to vaccine [Unknown]
  - Adverse food reaction [Unknown]
